FAERS Safety Report 9050018 (Version 1)
Quarter: 2013Q1

REPORT INFORMATION
  Report Type: Spontaneous
  Country: US (occurrence: US)
  Receive Date: 20130205
  Receipt Date: 20130205
  Transmission Date: 20140127
  Serious: No
  Sender: FDA-Public Use
  Company Number: US-GLAXOSMITHKLINE-A0978586A

PATIENT
  Age: 77 Year
  Sex: Female

DRUGS (2)
  1. ARIXTRA [Suspect]
     Indication: POSTOPERATIVE THROMBOSIS
     Dosage: 7.5MG PER DAY
     Route: 058
     Dates: start: 201201
  2. CHEMOTHERAPY [Concomitant]

REACTIONS (2)
  - Insomnia [Not Recovered/Not Resolved]
  - Blood potassium decreased [Unknown]
